FAERS Safety Report 11516614 (Version 1)
Quarter: 2015Q3

REPORT INFORMATION
  Report Type: Spontaneous
  Country: US (occurrence: US)
  Receive Date: 20150917
  Receipt Date: 20150917
  Transmission Date: 20151125
  Serious: No
  Sender: FDA-Public Use
  Company Number: US-GLENMARK PHARMACEUTICALS INC, USA.-2014GMK011775

PATIENT
  Sex: Female

DRUGS (2)
  1. NORETHINDRONE ACETATE. [Suspect]
     Active Substance: NORETHINDRONE ACETATE
     Dosage: 5 MG, QD
     Dates: start: 201409
  2. LUPRON [Suspect]
     Active Substance: LEUPROLIDE ACETATE
     Dosage: 3.75 MG, EVERY MONTH
     Dates: start: 201409

REACTIONS (3)
  - Drug dose omission [Not Recovered/Not Resolved]
  - Fatigue [Not Recovered/Not Resolved]
  - Nausea [Not Recovered/Not Resolved]
